FAERS Safety Report 6433373-9 (Version None)
Quarter: 2009Q4

REPORT INFORMATION
  Report Type: 
  Country: None (occurrence: None)
  Receive Date: 20091109
  Receipt Date: 20091030
  Transmission Date: 20100525
  Serious: Yes (Hospitalization, Other)
  Sender: FDA-Public Use
  Company Number: BE-ABBOTT-09P-013-0502333-00

PATIENT
  Sex: Female

DRUGS (4)
  1. HUMIRA [Suspect]
     Indication: RHEUMATOID ARTHRITIS
     Dates: start: 20070614, end: 20090115
  2. PIROXICAM [Concomitant]
     Indication: RHEUMATOID ARTHRITIS
     Dosage: 20MG/DAY
  3. LEDERTREXATE [Concomitant]
     Indication: RHEUMATOID ARTHRITIS
     Dosage: 5MG/WEEK
  4. FOLIC ACID [Concomitant]
     Indication: RHEUMATOID ARTHRITIS
     Dosage: 5MG/WEEK

REACTIONS (8)
  - BIOPSY BREAST ABNORMAL [None]
  - BREAST CANCER IN SITU [None]
  - BREAST HYPERPLASIA [None]
  - ENCEPHALITIS VIRAL [None]
  - FACIAL PALSY [None]
  - MENINGORADICULITIS [None]
  - PARAESTHESIA [None]
  - POLYNEUROPATHY [None]
